FAERS Safety Report 22020781 (Version 4)
Quarter: 2023Q2

REPORT INFORMATION
  Report Type: Other
  Country: CA (occurrence: None)
  Receive Date: 20230222
  Receipt Date: 20230419
  Transmission Date: 20230722
  Serious: Yes (Other)
  Sender: FDA-Public Use
  Company Number: CA-ROCHE-3287399

PATIENT
  Age: 38 Year
  Sex: Female

DRUGS (4)
  1. OCREVUS [Suspect]
     Active Substance: OCRELIZUMAB
     Indication: Relapsing-remitting multiple sclerosis
     Dosage: 300 MG AT DAY 0 AND 14, THEN 600 MG EVERY 6 MONTH
     Route: 042
     Dates: start: 20230209
  2. TRIMETHOPRIM [Concomitant]
     Active Substance: TRIMETHOPRIM
  3. NAPROXEN [Concomitant]
     Active Substance: NAPROXEN
     Indication: Pain
  4. PANTOPRAZOLE SODIUM [Concomitant]
     Active Substance: PANTOPRAZOLE SODIUM

REACTIONS (3)
  - Kidney infection [Unknown]
  - Cystitis [Unknown]
  - Product administration error [Unknown]

NARRATIVE: CASE EVENT DATE: 20230406
